FAERS Safety Report 4376372-3 (Version None)
Quarter: 2004Q2

REPORT INFORMATION
  Report Type: 
  Country: None (occurrence: None)
  Receive Date: 20040610
  Receipt Date: 20040610
  Transmission Date: 20050107
  Serious: No
  Sender: FDA-Public Use
  Company Number: None

PATIENT
  Age: 43 Year
  Sex: Female
  Weight: 68.0396 kg

DRUGS (1)
  1. AUGMENTIN XR [Suspect]
     Indication: SINUSITIS
     Dosage: 1 TABLET BID ORAL
     Route: 048
     Dates: start: 20040301, end: 20040310

REACTIONS (1)
  - MEDICATION ERROR [None]
